FAERS Safety Report 5934241-9 (Version None)
Quarter: 2008Q4

REPORT INFORMATION
  Report Type: 
  Country: None (occurrence: None)
  Receive Date: 20081028
  Receipt Date: 20081028
  Transmission Date: 20090506
  Serious: No
  Sender: FDA-Public Use
  Company Number: None

PATIENT
  Age: 69 Year
  Sex: Female
  Weight: 82.5547 kg

DRUGS (1)
  1. PATANASE [Suspect]
     Indication: RHINITIS ALLERGIC
     Dosage: TWO SPRAS PER NOSTRIL TWICE DAILY NASAL
     Route: 045
     Dates: start: 20081021, end: 20081025

REACTIONS (2)
  - NODULE [None]
  - RASH [None]
